FAERS Safety Report 23308589 (Version 1)
Quarter: 2023Q4

REPORT INFORMATION
  Report Type: Spontaneous
  Country: BG (occurrence: US)
  Receive Date: 20231218
  Receipt Date: 20231218
  Transmission Date: 20240110
  Serious: Yes (Hospitalization)
  Sender: FDA-Public Use
  Company Number: BG-BAYER-2023A178790

PATIENT
  Age: 67 Year
  Sex: Male
  Weight: 64.7 kg

DRUGS (12)
  1. ASPIRIN [Suspect]
     Active Substance: ASPIRIN
     Indication: Myocardial ischaemia
     Dosage: 100 MG, DAILY, ORAL
     Route: 048
     Dates: start: 201609, end: 20231021
  2. PLACEBO [Suspect]
     Active Substance: UNSPECIFIED INGREDIENT
     Indication: Cachexia
     Dosage: UNK UNK, Q4WK
     Route: 058
     Dates: start: 20231026, end: 20231028
  3. BEVACIZUMAB [Suspect]
     Active Substance: BEVACIZUMAB
     Indication: Non-small cell lung cancer
     Dosage: 800 MG, SOLUTION, EVERY 3  WEEKS, INTRAVENOUS
     Dates: start: 20230814, end: 20231018
  4. CLOPIDOGREL BESILATE [Suspect]
     Active Substance: CLOPIDOGREL BESILATE
     Indication: Myocardial ischaemia
     Dosage: 75 MG, DAILY, ORAL
     Dates: start: 201609, end: 20231021
  5. CARBOPLATIN [Concomitant]
     Active Substance: CARBOPLATIN
     Indication: Non-small cell lung cancer
     Dosage: UNK
     Route: 042
     Dates: start: 20230814
  6. PACLITAXEL [Concomitant]
     Active Substance: PACLITAXEL
     Indication: Non-small cell lung cancer
     Dosage: UNK
     Route: 042
     Dates: start: 20230814
  7. TECENTRIQ [Concomitant]
     Active Substance: ATEZOLIZUMAB
     Indication: Non-small cell lung cancer
     Dosage: UNK
     Route: 042
     Dates: start: 20230814
  8. ONDANSETRON [Concomitant]
     Active Substance: ONDANSETRON
     Indication: Prophylaxis of nausea and vomiting
     Dosage: UNK
     Route: 042
     Dates: start: 20230814
  9. DEXAMETHASONE [Concomitant]
     Active Substance: DEXAMETHASONE
     Dosage: UNK
     Route: 042
     Dates: start: 20230814
  10. ALLERGOSAN [CHLOROPYRAMINE HYDROCHLORIDE] [Concomitant]
     Indication: Prophylaxis
     Dosage: UNK
     Route: 030
     Dates: start: 20230814
  11. FILGRASTIM [Concomitant]
     Active Substance: FILGRASTIM
     Indication: Prophylaxis
     Dosage: UNK
     Route: 058
     Dates: start: 20230815
  12. ROSUVISTAT [Concomitant]
     Indication: Lipoprotein metabolism disorder
     Dosage: UNK
     Route: 048
     Dates: start: 201609

REACTIONS (2)
  - Epistaxis [Recovered/Resolved]
  - Dizziness [None]

NARRATIVE: CASE EVENT DATE: 20231021
